FAERS Safety Report 21627777 (Version 1)
Quarter: 2022Q4

REPORT INFORMATION
  Report Type: Spontaneous
  Country: None (occurrence: ES)
  Receive Date: 20221122
  Receipt Date: 20221122
  Transmission Date: 20230113
  Serious: Yes (Other)
  Sender: FDA-Public Use
  Company Number: ES-Wraser Pharmaceuticals, LLC-2135143

PATIENT
  Age: 37 Year
  Sex: Female
  Weight: 77.5 kg

DRUGS (1)
  1. CIPROFLOXACIN AND FLUOCINOLONE ACETONIDE [Suspect]
     Active Substance: CIPROFLOXACIN\FLUOCINOLONE ACETONIDE
     Indication: Otitis media
     Route: 001
     Dates: start: 20220921

REACTIONS (2)
  - Respiratory distress [Recovered/Resolved]
  - Pharyngeal inflammation [Recovered/Resolved]

NARRATIVE: CASE EVENT DATE: 20220921
